FAERS Safety Report 7902992-2 (Version None)
Quarter: 2011Q4

REPORT INFORMATION
  Report Type: 
  Country: None (occurrence: None)
  Receive Date: 20111107
  Receipt Date: 20111021
  Transmission Date: 20120403
  Serious: Yes (Congenital Anomaly)
  Sender: FDA-Public Use
  Company Number: 2011MA015616

PATIENT
  Sex: Female

DRUGS (2)
  1. LEVETIRACETAM [Suspect]
     Indication: FOETAL EXPOSURE DURING PREGNANCY
     Dosage: TRPL
  2. LAMOTRIGINE [Suspect]
     Indication: FOETAL EXPOSURE DURING PREGNANCY

REACTIONS (2)
  - FOETAL EXPOSURE DURING PREGNANCY [None]
  - PYLORIC STENOSIS [None]
